FAERS Safety Report 9745915 (Version 3)
Quarter: 2014Q1

REPORT INFORMATION
  Report Type: Report from Study
  Country: GB (occurrence: GB)
  Receive Date: 20131211
  Receipt Date: 20140120
  Transmission Date: 20141002
  Serious: Yes (Other)
  Sender: FDA-Public Use
  Company Number: GB-BAXTER-2013BAX048951

PATIENT
  Age: 50 Year
  Sex: Female

DRUGS (2)
  1. GLUCOSE 5% INTRAVENOUS INFUSION BP [Suspect]
     Indication: OVARIAN CANCER
     Route: 042
     Dates: start: 20121121, end: 20121121
  2. CARBOPLATIN [Suspect]
     Indication: OVARIAN CANCER
     Route: 042
     Dates: start: 20121121, end: 20121121

REACTIONS (1)
  - Anaphylactic reaction [Recovered/Resolved]
